FAERS Safety Report 7004678-8 (Version None)
Quarter: 2010Q3

REPORT INFORMATION
  Report Type: 
  Country: None (occurrence: None)
  Receive Date: 20100921
  Receipt Date: 20100915
  Transmission Date: 20110219
  Serious: Yes (Other)
  Sender: FDA-Public Use
  Company Number: US-ASTRAZENECA-2007UW01743

PATIENT
  Age: 14525 Day
  Sex: Male
  Weight: 83.9 kg

DRUGS (4)
  1. SEROQUEL [Suspect]
     Indication: DEPRESSION
     Dosage: 100-300 MG
     Route: 048
     Dates: start: 20011101, end: 20060630
  2. LOVASTATIN [Concomitant]
     Indication: BLOOD CHOLESTEROL INCREASED
  3. LOVASTATIN [Concomitant]
     Indication: HYPERLIPIDAEMIA
  4. ZYPREXA [Concomitant]
     Dates: start: 20050101

REACTIONS (2)
  - POLYP [None]
  - TYPE 2 DIABETES MELLITUS [None]
